FAERS Safety Report 17102804 (Version 1)
Quarter: 2019Q4

REPORT INFORMATION
  Report Type: Report from Study
  Country: BR (occurrence: BR)
  Receive Date: 20191203
  Receipt Date: 20191203
  Transmission Date: 20200122
  Serious: Yes (Hospitalization)
  Sender: FDA-Public Use
  Company Number: BR-EMD SERONO-9118455

PATIENT
  Sex: Male

DRUGS (7)
  1. TILESTAL [Concomitant]
     Indication: PRODUCT USED FOR UNKNOWN INDICATION
     Dosage: 2 PACK OF 12 X 12 HOURS
  2. PREGABALIN. [Concomitant]
     Active Substance: PREGABALIN
     Indication: PRODUCT USED FOR UNKNOWN INDICATION
     Dosage: ONE MORNING TWO MORNING AT NIGHT
  3. LOSARTAN. [Concomitant]
     Active Substance: LOSARTAN
     Indication: PRODUCT USED FOR UNKNOWN INDICATION
  4. REBIF [Suspect]
     Active Substance: INTERFERON BETA-1A
     Indication: MULTIPLE SCLEROSIS
     Route: 058
  5. BIO-MANGUINHOS BETAINTERFERONA 1A 44 MCG [Suspect]
     Active Substance: INTERFERON BETA-1A
     Indication: MULTIPLE SCLEROSIS
     Route: 058
     Dates: start: 20190524
  6. PREGABALIN. [Concomitant]
     Active Substance: PREGABALIN
     Dosage: ONE MORNING TWO MORNING AT NIGHT
  7. TRILEPTAL [Concomitant]
     Active Substance: OXCARBAZEPINE
     Dosage: 2 PACK OF 12 X 12 HOURS

REACTIONS (7)
  - Dizziness [Recovering/Resolving]
  - Blood sodium decreased [Recovering/Resolving]
  - Impaired work ability [Recovering/Resolving]
  - Nail disorder [Unknown]
  - Chills [Unknown]
  - Viral infection [Unknown]
  - Trigeminal neuralgia [Recovering/Resolving]

NARRATIVE: CASE EVENT DATE: 2019
